FAERS Safety Report 12855372 (Version 2)
Quarter: 2016Q4

REPORT INFORMATION
  Report Type: Spontaneous
  Country: CN (occurrence: CN)
  Receive Date: 20161017
  Receipt Date: 20161031
  Transmission Date: 20170207
  Serious: Yes (Hospitalization, Other)
  Sender: FDA-Public Use
  Company Number: CN-ELI_LILLY_AND_COMPANY-CN201609004439

PATIENT
  Age: 73 Year
  Sex: Female
  Weight: 45 kg

DRUGS (7)
  1. FORSTEO [Suspect]
     Active Substance: TERIPARATIDE
     Indication: FRACTURE
     Dosage: 20 UG, QD
     Route: 058
     Dates: start: 201604
  2. FORSTEO [Suspect]
     Active Substance: TERIPARATIDE
     Dosage: 20 UG, QD
     Route: 058
     Dates: start: 201610, end: 201610
  3. FORSTEO [Suspect]
     Active Substance: TERIPARATIDE
     Dosage: 20 UG, QD
     Route: 058
     Dates: end: 20160831
  4. FORSTEO [Suspect]
     Active Substance: TERIPARATIDE
     Dosage: 20 UG, QD
     Route: 058
     Dates: start: 20160901, end: 20160910
  5. FORSTEO [Suspect]
     Active Substance: TERIPARATIDE
     Indication: OSTEOPOROSIS
     Dosage: 20 UG, QD
     Route: 058
     Dates: start: 201407
  6. RABEPRAZOLE [Concomitant]
     Active Substance: RABEPRAZOLE
  7. VITAMIN D [Concomitant]
     Active Substance: CHOLECALCIFEROL

REACTIONS (8)
  - Back pain [Recovering/Resolving]
  - Vomiting [Not Recovered/Not Resolved]
  - Drug dose omission [Unknown]
  - Upper limb fracture [Recovering/Resolving]
  - Weight decreased [Unknown]
  - Vomiting [Recovering/Resolving]
  - Hypophagia [Unknown]
  - Arthralgia [Unknown]

NARRATIVE: CASE EVENT DATE: 20160829
